FAERS Safety Report 4903877-6 (Version None)
Quarter: 2006Q1

REPORT INFORMATION
  Report Type: 
  Country: None (occurrence: None)
  Receive Date: 20060208
  Receipt Date: 20050719
  Transmission Date: 20060701
  Serious: No
  Sender: FDA-Public Use
  Company Number: US-GLAXOSMITHKLINE-A0566902A

PATIENT
  Age: 55 Year
  Sex: Female

DRUGS (4)
  1. PAXIL [Suspect]
     Indication: DEPRESSION
     Dosage: 20MG TWICE PER DAY
     Route: 048
  2. ATIVAN [Concomitant]
  3. NEXIUM [Concomitant]
  4. ACTONEL [Concomitant]

REACTIONS (1)
  - CRYING [None]
